FAERS Safety Report 17816304 (Version 1)
Quarter: 2020Q2

REPORT INFORMATION
  Report Type: Spontaneous
  Country: US (occurrence: US)
  Receive Date: 20200522
  Receipt Date: 20200522
  Transmission Date: 20200714
  Serious: No
  Sender: FDA-Public Use
  Company Number: US-009507513-2005USA005663

PATIENT
  Sex: Female

DRUGS (1)
  1. DULERA [Suspect]
     Active Substance: FORMOTEROL FUMARATE DIHYDRATE\MOMETASONE FUROATE
     Dosage: 2 PUFLS IN AM AND 2 PUFFS IN PM
     Dates: start: 20200319

REACTIONS (3)
  - Product quality issue [Unknown]
  - Poor quality device used [Unknown]
  - No adverse event [Unknown]

NARRATIVE: CASE EVENT DATE: 20200513
